FAERS Safety Report 5796411-2 (Version None)
Quarter: 2008Q2

REPORT INFORMATION
  Report Type: 
  Country: None (occurrence: None)
  Receive Date: 20080630
  Receipt Date: 20080630
  Transmission Date: 20081010
  Serious: No
  Sender: FDA-Public Use
  Company Number: None

PATIENT
  Sex: Female
  Weight: 81.6475 kg

DRUGS (2)
  1. CYMBALTA [Suspect]
     Indication: NEUROPATHY PERIPHERAL
     Dosage: 30 MG. ONE-A-DAY PO
     Route: 048
     Dates: start: 20080605, end: 20080606
  2. CYMBALTA [Suspect]
     Indication: NEUROPATHY PERIPHERAL
     Dosage: 30 MG. ONE-A-DAY PO
     Route: 048
     Dates: start: 20080618, end: 20080619

REACTIONS (5)
  - DIZZINESS [None]
  - MALAISE [None]
  - NAUSEA [None]
  - SYNCOPE [None]
  - TREMOR [None]
